FAERS Safety Report 6510545-6 (Version None)
Quarter: 2009Q4

REPORT INFORMATION
  Report Type: 
  Country: None (occurrence: None)
  Receive Date: 20091222
  Receipt Date: 20091026
  Transmission Date: 20100525
  Serious: No
  Sender: FDA-Public Use
  Company Number: US-ASTRAZENECA-2009SE22603

PATIENT
  Age: 512 Month
  Sex: Female
  Weight: 64 kg

DRUGS (4)
  1. CRESTOR [Suspect]
     Route: 048
     Dates: start: 20091001
  2. DETROL [Concomitant]
  3. VITAMINS [Concomitant]
  4. SUPPLEMENTS [Concomitant]

REACTIONS (2)
  - DRY MOUTH [None]
  - HEADACHE [None]
